FAERS Safety Report 4387677-4 (Version None)
Quarter: 2004Q2

REPORT INFORMATION
  Report Type: 
  Country: None (occurrence: None)
  Receive Date: 20040625
  Receipt Date: 20040614
  Transmission Date: 20050107
  Serious: Yes (Hospitalization)
  Sender: FDA-Public Use
  Company Number: 2004031169

PATIENT
  Age: 38 Year
  Sex: Female

DRUGS (4)
  1. NEURONTIN [Suspect]
     Indication: NEUROPATHY
     Dosage: 300 MG (300 MG, 1 IN 1 D), ORAL
     Route: 048
     Dates: start: 20030101, end: 20040301
  2. INSULIN [Concomitant]
  3. FLUOXETINE [Concomitant]
  4. LEVOTHYROXINE (LEVOHYROXINE) [Concomitant]

REACTIONS (6)
  - CONDITION AGGRAVATED [None]
  - DIABETES MELLITUS [None]
  - INSOMNIA [None]
  - MUSCLE CRAMP [None]
  - NEUROPATHIC PAIN [None]
  - PAIN IN EXTREMITY [None]
